FAERS Safety Report 25659340 (Version 1)
Quarter: 2025Q3

REPORT INFORMATION
  Report Type: Report from Study
  Country: EU (occurrence: EU)
  Receive Date: 20250808
  Receipt Date: 20250808
  Transmission Date: 20251020
  Serious: Yes (Other)
  Sender: AUROBINDO
  Company Number: EU-AUROBINDO-AUR-APL-2025-040637

PATIENT
  Age: 13 Year
  Sex: Male

DRUGS (8)
  1. FUROSEMIDE [Suspect]
     Active Substance: FUROSEMIDE
     Indication: Acute kidney injury
     Dosage: 60 MILLIGRAM, TWO TIMES A DAY
     Route: 065
  2. FUROSEMIDE [Suspect]
     Active Substance: FUROSEMIDE
     Indication: Hypercalcaemia
  3. AMLODIPINE [Suspect]
     Active Substance: AMLODIPINE BESYLATE
     Indication: Hypertension
     Dosage: 10 MILLIGRAM, ONCE A DAY
     Route: 065
  4. DENOSUMAB [Suspect]
     Active Substance: DENOSUMAB
     Indication: Giant cell epulis
     Dosage: 2.5 MILLIGRAM/KILOGRAM, EVERY WEEK
     Route: 058
  5. SODIUM CHLORIDE [Suspect]
     Active Substance: SODIUM CHLORIDE
     Indication: Product used for unknown indication
     Dosage: 2 LITER, ONCE A DAY
     Route: 042
  6. CALCIUM [Concomitant]
     Active Substance: CALCIUM
     Indication: Product used for unknown indication
     Dosage: 500 MILLIGRAM, ONCE A DAY
     Route: 065
  7. VITAMIN D [Concomitant]
     Active Substance: VITAMIN D NOS
     Indication: Product used for unknown indication
     Route: 065
  8. PAMIDRONATE [Concomitant]
     Active Substance: PAMIDRONATE DISODIUM
     Indication: Product used for unknown indication
     Route: 065

REACTIONS (1)
  - Drug ineffective [Unknown]
